FAERS Safety Report 9364451 (Version 3)
Quarter: 2014Q1

REPORT INFORMATION
  Report Type: Report from Study
  Country: US (occurrence: US)
  Receive Date: 20130624
  Receipt Date: 20140212
  Transmission Date: 20141002
  Serious: Yes (Hospitalization, Other)
  Sender: FDA-Public Use
  Company Number: US-NAPPMUNDI-USA-2013-0103626

PATIENT
  Age: 54 Year
  Sex: Female
  Weight: 48.53 kg

DRUGS (5)
  1. OXYCONTIN (NDA 22-272) [Suspect]
     Indication: NECK PAIN
     Dosage: UNK UNK, SEE TEXT
     Route: 048
     Dates: start: 20120510
  2. OXYCONTIN (NDA 22-272) [Suspect]
     Indication: INTERVERTEBRAL DISC DEGENERATION
  3. PERCOCET                           /00867901/ [Concomitant]
     Indication: PAIN
     Dosage: 10/325MG PRN
     Dates: start: 2013, end: 201306
  4. INSULIN [Concomitant]
     Indication: DIABETES MELLITUS
     Dosage: 70/30UNK
     Dates: start: 201306, end: 201306
  5. LISINOPRIL [Concomitant]
     Indication: HYPERTENSION
     Dosage: 10 MG, DAILY
     Dates: start: 201306, end: 201306

REACTIONS (6)
  - Osteomyelitis chronic [Unknown]
  - Convulsion [Unknown]
  - Head injury [Unknown]
  - Impaired healing [Unknown]
  - Amnesia [Recovered/Resolved]
  - Fall [Recovered/Resolved]
